FAERS Safety Report 8836266 (Version 3)
Quarter: 2012Q4

REPORT INFORMATION
  Report Type: 
  Country: US (occurrence: US)
  Receive Date: 20121011
  Receipt Date: 20121107
  Transmission Date: 20130627
  Serious: Yes (Hospitalization)
  Sender: FDA-Public Use
  Company Number: US-GENZYME-CLOF-1002332

PATIENT
  Age: 13 Year
  Sex: Male
  Weight: 37.7 kg

DRUGS (27)
  1. CLOLAR [Suspect]
     Indication: LYMPHOCYTIC LEUKAEMIA
     Dosage: 40 mg,  qd (administered in consolidation part 2)
     Route: 065
     Dates: start: 20120622, end: 20120626
  2. CYCLOPHOSPHAMIDE [Suspect]
     Indication: LYMPHOCYTIC LEUKAEMIA
     Dosage: UNK
     Route: 065
     Dates: start: 20120525, end: 20120525
  3. CYCLOPHOSPHAMIDE [Suspect]
     Dosage: 576 mg, qd, (administered in consolidation part 2)
     Route: 065
     Dates: start: 20120622, end: 20120626
  4. VP-16 [Suspect]
     Indication: LYMPHOCYTIC LEUKAEMIA
     Dosage: 131 mg, qd, (administered in consolidation part 2)
     Route: 065
     Dates: start: 20120622, end: 20120626
  5. PEG-ASPARAGINASE [Suspect]
     Indication: LYMPHOCYTIC LEUKAEMIA
     Dosage: UNK
     Route: 065
     Dates: start: 20120421, end: 20120421
  6. PEG-ASPARAGINASE [Suspect]
     Dosage: UNK
     Route: 065
     Dates: start: 20120608, end: 20120608
  7. PEG-ASPARAGINASE [Suspect]
     Dosage: 3225 iu, UNK (day 43), (administered in consolidation part 2)
     Route: 065
     Dates: start: 20120710, end: 20120710
  8. VINCRISTINE [Suspect]
     Indication: LYMPHOCYTIC LEUKAEMIA
     Dosage: UNK
     Route: 065
     Dates: start: 20120419, end: 20120419
  9. VINCRISTINE [Suspect]
     Dosage: UNK
     Route: 065
     Dates: start: 20120426, end: 20120426
  10. VINCRISTINE [Suspect]
     Dosage: UNK
     Route: 065
     Dates: start: 20120502, end: 20120502
  11. VINCRISTINE [Suspect]
     Dosage: UNK
     Route: 065
     Dates: start: 20120509, end: 20120509
  12. VINCRISTINE [Suspect]
     Dosage: UNK
     Route: 065
     Dates: start: 20120608, end: 20120608
  13. VINCRISTINE [Suspect]
     Dosage: UNK
     Route: 065
     Dates: start: 20120615, end: 20120615
  14. VINCRISTINE [Suspect]
     Dosage: 1.9 mg, UNK (day 43 ), (administered in consolidation part 2)
     Route: 065
     Dates: start: 20120706, end: 20120706
  15. VINCRISTINE [Suspect]
     Dosage: 1.9 mg, UNK, day 50
     Route: 065
     Dates: start: 20120713, end: 20120713
  16. PENTAMIDINE [Concomitant]
     Indication: PRODUCT USED FOR UNKNOWN INDICATION
     Dosage: UNK
     Route: 042
  17. MARINOL [Concomitant]
     Indication: PRODUCT USED FOR UNKNOWN INDICATION
     Dosage: UNK
     Route: 065
  18. OXYCODONE [Concomitant]
     Indication: PRODUCT USED FOR UNKNOWN INDICATION
     Dosage: UNK
     Route: 065
  19. FAMOTIDINE [Concomitant]
     Indication: PRODUCT USED FOR UNKNOWN INDICATION
     Dosage: UNK
     Route: 065
  20. NEURONTIN [Concomitant]
     Indication: PRODUCT USED FOR UNKNOWN INDICATION
     Dosage: UNK
     Route: 065
  21. CYPROHEPTADINE [Concomitant]
     Indication: PRODUCT USED FOR UNKNOWN INDICATION
     Dosage: UNK
     Route: 065
  22. LORAZEPAM [Concomitant]
     Indication: PRODUCT USED FOR UNKNOWN INDICATION
     Dosage: UNK
     Route: 065
  23. ONDASETRON [Concomitant]
     Indication: PRODUCT USED FOR UNKNOWN INDICATION
     Dosage: UNK
     Route: 065
  24. GRANISETRON [Concomitant]
     Indication: PRODUCT USED FOR UNKNOWN INDICATION
     Dosage: UNK
     Route: 065
  25. NEXIUM [Concomitant]
     Indication: PRODUCT USED FOR UNKNOWN INDICATION
     Dosage: UNK
     Route: 065
  26. PHENERGAN [Concomitant]
     Indication: PRODUCT USED FOR UNKNOWN INDICATION
     Dosage: UNK
     Route: 065
  27. DIPHENHYDRAMINE [Concomitant]
     Indication: PRODUCT USED FOR UNKNOWN INDICATION
     Dosage: UNK
     Route: 065

REACTIONS (6)
  - Weight decreased [Unknown]
  - Febrile neutropenia [Recovered/Resolved]
  - Decreased appetite [Unknown]
  - Bone density decreased [Unknown]
  - Vomiting [Recovered/Resolved]
  - Nausea [Unknown]
